FAERS Safety Report 10481459 (Version 1)
Quarter: 2014Q3

REPORT INFORMATION
  Report Type: Spontaneous
  Country: US (occurrence: US)
  Receive Date: 20140929
  Receipt Date: 20140929
  Transmission Date: 20150326
  Serious: No
  Sender: FDA-Public Use
  Company Number: US-BAYER-2014-144101

PATIENT
  Age: 66 Year
  Sex: Male
  Weight: 73.47 kg

DRUGS (3)
  1. KRILL OIL [Concomitant]
     Active Substance: DIETARY SUPPLEMENT
  2. ALEVE [Suspect]
     Active Substance: NAPROXEN SODIUM
     Indication: ARTHRITIS
     Dosage: 1 DF, PRN
     Route: 048
     Dates: start: 2004
  3. CALCIUM [Concomitant]
     Active Substance: CALCIUM

REACTIONS (2)
  - Intentional product misuse [Unknown]
  - Intentional product misuse [Unknown]

NARRATIVE: CASE EVENT DATE: 2004
